FAERS Safety Report 26044817 (Version 1)
Quarter: 2025Q4

REPORT INFORMATION
  Report Type: Spontaneous
  Country: US (occurrence: US)
  Receive Date: 20251114
  Receipt Date: 20251114
  Transmission Date: 20260117
  Serious: No
  Sender: OPTINOSE INC
  Company Number: US-OptiNose US, Inc-2024OPT000100

PATIENT

DRUGS (13)
  1. XHANCE [Suspect]
     Active Substance: FLUTICASONE PROPIONATE
     Indication: Chronic rhinosinusitis with nasal polyps
     Dosage: 372 MICROGRAM, BID
     Route: 045
  2. DEVICE [Suspect]
     Active Substance: DEVICE
     Indication: Chronic rhinosinusitis with nasal polyps
     Dosage: UNK UNK
     Route: 045
  3. ALFUZOSIN [Concomitant]
     Active Substance: ALFUZOSIN
  4. BIKTARVY [Concomitant]
     Active Substance: BICTEGRAVIR SODIUM\EMTRICITABINE\TENOFOVIR ALAFENAMIDE FUMARATE
  5. CLONAZEPAM [Concomitant]
     Active Substance: CLONAZEPAM
  6. ESOMEPRAZOLE [Concomitant]
     Active Substance: ESOMEPRAZOLE
  7. GABAPENTIN [Concomitant]
     Active Substance: GABAPENTIN
  8. LAMOTRIGINE [Concomitant]
     Active Substance: LAMOTRIGINE
  9. ROSUVASTATIN [Concomitant]
     Active Substance: ROSUVASTATIN
  10. SILDENAFIL [Concomitant]
     Active Substance: SILDENAFIL
  11. TESTOSTERONE CYPIONATE [Concomitant]
     Active Substance: TESTOSTERONE CYPIONATE
  12. BUPROPION [Concomitant]
     Active Substance: BUPROPION
  13. ZOLPIDEM [Concomitant]
     Active Substance: ZOLPIDEM TARTRATE

REACTIONS (3)
  - Anosmia [Unknown]
  - Migraine [Recovered/Resolved]
  - Unevaluable event [Unknown]
